FAERS Safety Report 25314213 (Version 1)
Quarter: 2025Q2

REPORT INFORMATION
  Report Type: Other
  Country: DE (occurrence: DE)
  Receive Date: 20250514
  Receipt Date: 20250514
  Transmission Date: 20250717
  Serious: Yes (Congenital Anomaly, Other)
  Sender: LUPIN
  Company Number: DE-EMB-M201900721-1

PATIENT
  Sex: Female
  Weight: 3.275 kg

DRUGS (4)
  1. QUETIAPINE [Suspect]
     Active Substance: QUETIAPINE
     Indication: Depression
     Dates: start: 201804, end: 201902
  2. CITALOPRAM [Suspect]
     Active Substance: CITALOPRAM
     Indication: Depression
     Dosage: 20 MILLIGRAM, QD
     Dates: start: 201804, end: 201902
  3. VAXIGRIPTETRA [Concomitant]
     Active Substance: INFLUENZA VIRUS VACCINE QUADRIVALENT TYPE A+B
     Indication: Immunisation
     Dates: start: 201811, end: 201811
  4. CYTOTEC [Concomitant]
     Active Substance: MISOPROSTOL
     Indication: Labour induction
     Dates: start: 201902, end: 201902

REACTIONS (2)
  - Developmental hip dysplasia [Recovering/Resolving]
  - Foetal exposure during pregnancy [Unknown]
